FAERS Safety Report 9248648 (Version 1)
Quarter: 2013Q1

REPORT INFORMATION
  Report Type: Spontaneous
  Country: US (occurrence: None)
  Receive Date: 20130305
  Receipt Date: 20130305
  Transmission Date: 20140127
  Serious: Yes (Other)
  Sender: FDA-Public Use
  Company Number: 163-21880-12092694

PATIENT
  Age: 76 Year
  Sex: Male

DRUGS (13)
  1. REVLIMID (LENALIDOMIDE) (25 MILLIGRAM, CAPSULES) [Suspect]
     Indication: PLASMA CELL MYELOMA
     Dosage: 21 IN 21 D
     Route: 048
     Dates: start: 20110519
  2. CYANOCOBALAMIN [Suspect]
  3. VITAMIN D3 (COLECALCIFEROL) [Suspect]
  4. MAGNESIUM GLUCONATE [Suspect]
  5. OMEPRAZOLE (OMEPRAZOLE) [Suspect]
  6. OXYCODONE HYDROCHLORIDE [Suspect]
  7. ATIVAN (LORAZEPAM) [Suspect]
  8. EFUDEX (FLUOROURACIL) [Suspect]
  9. ASPIRIN (ACETYLSALICYLIC ACID) [Suspect]
  10. BENADRYL ALLERGEY (BENADRYL ALLERGY) [Suspect]
  11. DEXAMETHASONE (DEXAMETHASONE) [Suspect]
  12. GLYBURIDE (GLIBENCLAMIDE) [Suspect]
  13. POTASSIUM CHLORIDE (POTASSIUM CHLORIDE) [Suspect]

REACTIONS (2)
  - Platelet count decreased [None]
  - White blood cell count decreased [None]
